FAERS Safety Report 7788357-5 (Version None)
Quarter: 2011Q3

REPORT INFORMATION
  Report Type: 
  Country: None (occurrence: None)
  Receive Date: 20110927
  Receipt Date: 20110914
  Transmission Date: 20111222
  Serious: Yes (Hospitalization)
  Sender: FDA-Public Use
  Company Number: ALK_01985_2011

PATIENT
  Sex: Female

DRUGS (1)
  1. VIVITROL [Suspect]
     Indication: ALCOHOLISM
     Dosage: (INTRAMUSCULAR)
     Route: 030
     Dates: start: 20110804

REACTIONS (9)
  - NEEDLE ISSUE [None]
  - INJECTION SITE NODULE [None]
  - INJECTION SITE IRRITATION [None]
  - NAUSEA [None]
  - INJECTION SITE ERYTHEMA [None]
  - INJECTION SITE REACTION [None]
  - DIZZINESS [None]
  - INJECTION SITE MASS [None]
  - JOINT SWELLING [None]
